FAERS Safety Report 21022004 (Version 1)
Quarter: 2022Q2

REPORT INFORMATION
  Report Type: Spontaneous
  Country: US (occurrence: None)
  Receive Date: 20220628
  Receipt Date: 20220628
  Transmission Date: 20220721
  Serious: Yes (Death)
  Sender: FDA-Public Use
  Company Number: None

PATIENT
  Age: 76 Year
  Sex: Male

DRUGS (1)
  1. DEFERASIROX [Suspect]
     Active Substance: DEFERASIROX
     Indication: Product used for unknown indication
     Dosage: OTHER QUANTITY : 5 TABS;?FREQUENCY : DAILY;?OTHER ROUTE : DISSOLVE AND DRINK;?
     Route: 050
     Dates: start: 20211122, end: 20220625

REACTIONS (1)
  - Death [None]

NARRATIVE: CASE EVENT DATE: 20220625
